FAERS Safety Report 16974347 (Version 2)
Quarter: 2019Q4

REPORT INFORMATION
  Report Type: Report from Study
  Country: US (occurrence: US)
  Receive Date: 20191030
  Receipt Date: 20191230
  Transmission Date: 20200122
  Serious: Yes (Hospitalization, Other)
  Sender: FDA-Public Use
  Company Number: US-ROCHE-2145895

PATIENT
  Sex: Female
  Weight: 54 kg

DRUGS (5)
  1. HUMIRA [Suspect]
     Active Substance: ADALIMUMAB
     Indication: RHEUMATOID ARTHRITIS
     Dosage: 40MG/0.8ML
     Route: 058
     Dates: start: 2004, end: 201703
  2. TAMIFLU [Suspect]
     Active Substance: OSELTAMIVIR PHOSPHATE
     Indication: PRODUCT USED FOR UNKNOWN INDICATION
     Route: 065
  3. METHOTREXATE. [Suspect]
     Active Substance: METHOTREXATE
     Indication: PRODUCT USED FOR UNKNOWN INDICATION
     Dosage: (1 IN 1 M), (1 IN 1 WK)
     Route: 065
  4. ATORVASTATIN [Concomitant]
     Active Substance: ATORVASTATIN
     Indication: HYPERLIPIDAEMIA
  5. LANSOPRAZOLE. [Concomitant]
     Active Substance: LANSOPRAZOLE
     Indication: GASTROOESOPHAGEAL REFLUX DISEASE

REACTIONS (33)
  - Drug hypersensitivity [Unknown]
  - Osteoarthritis [Unknown]
  - Diarrhoea [Not Recovered/Not Resolved]
  - Skin burning sensation [Not Recovered/Not Resolved]
  - Back disorder [Unknown]
  - Syncope [Unknown]
  - Gastric ulcer [Recovering/Resolving]
  - Rheumatoid arthritis [Unknown]
  - High frequency ablation [Recovering/Resolving]
  - Cholecystitis [Recovered/Resolved]
  - Protein total decreased [Recovered/Resolved]
  - Weight decreased [Not Recovered/Not Resolved]
  - Night sweats [Not Recovered/Not Resolved]
  - Dry eye [Not Recovered/Not Resolved]
  - Cyst [Not Recovered/Not Resolved]
  - Hypokalaemia [Recovered/Resolved]
  - Bursitis [Not Recovered/Not Resolved]
  - Blood pressure abnormal [Not Recovered/Not Resolved]
  - Influenza [Unknown]
  - Eye infection [Unknown]
  - Eye disorder [Recovering/Resolving]
  - Neuropathy peripheral [Not Recovered/Not Resolved]
  - Blood calcium decreased [Recovered/Resolved]
  - Hypoaesthesia [Not Recovered/Not Resolved]
  - Hypotension [Recovered/Resolved]
  - Injection site pain [Recovered/Resolved]
  - Anaemia macrocytic [Recovered/Resolved]
  - Dehydration [Recovered/Resolved]
  - Synovial cyst [Unknown]
  - Carpal tunnel syndrome [Not Recovered/Not Resolved]
  - Body height decreased [Not Recovered/Not Resolved]
  - Dry skin [Recovering/Resolving]
  - Arthropathy [Not Recovered/Not Resolved]

NARRATIVE: CASE EVENT DATE: 2017
